FAERS Safety Report 6153481-X (Version None)
Quarter: 2009Q2

REPORT INFORMATION
  Report Type: 
  Country: None (occurrence: None)
  Receive Date: 20090413
  Receipt Date: 20081023
  Transmission Date: 20091009
  Serious: No
  Sender: FDA-Public Use
  Company Number: US-ABBOTT-08P-163-0482605-00

PATIENT
  Sex: Female
  Weight: 65.83 kg

DRUGS (3)
  1. LUPRON [Suspect]
     Indication: INFERTILITY
     Route: 050
     Dates: start: 20070711, end: 20071001
  2. FOLLITROPIN ALFA [Concomitant]
     Indication: INFERTILITY
     Dates: start: 20070711
  3. MENOPURE [Concomitant]
     Indication: INFERTILITY
     Dates: start: 20070711

REACTIONS (1)
  - HEADACHE [None]
